FAERS Safety Report 13738557 (Version 1)
Quarter: 2017Q3

REPORT INFORMATION
  Report Type: Report from Study
  Country: US (occurrence: US)
  Receive Date: 20170710
  Receipt Date: 20170710
  Transmission Date: 20171127
  Serious: No
  Sender: FDA-Public Use
  Company Number: US-SAOL THERAPEUTICS-2017SAO00186

PATIENT
  Age: 55 Year
  Sex: Female

DRUGS (24)
  1. COMPOUNDED BACLOFEN [Suspect]
     Active Substance: BACLOFEN
     Dosage: 414.33 ?G, \DAY
     Route: 037
     Dates: start: 20160517, end: 20160520
  2. COMPOUNDED BACLOFEN [Suspect]
     Active Substance: BACLOFEN
     Dosage: 361.29 ?G, \DAY
     Route: 037
     Dates: start: 20160520
  3. DILAUDID [Suspect]
     Active Substance: HYDROMORPHONE HYDROCHLORIDE
     Dosage: 7.225 MG, \DAY
     Route: 037
     Dates: start: 20160520
  4. CLONIDINE. [Suspect]
     Active Substance: CLONIDINE
     Dosage: 270.97 ?G, \DAY
     Route: 037
     Dates: start: 20160520
  5. BUPIVACAINE. [Suspect]
     Active Substance: BUPIVACAINE
     Dosage: 24.993 MG, \DAY
     Route: 037
     Dates: start: 20160517, end: 20160520
  6. COMPOUNDED BACLOFEN [Suspect]
     Active Substance: BACLOFEN
     Dosage: 249.93 ?G, \DAY
     Route: 037
     Dates: start: 20160517, end: 20160520
  7. DILAUDID [Suspect]
     Active Substance: HYDROMORPHONE HYDROCHLORIDE
     Dosage: 4.998 MG, \DAY
     Route: 037
     Dates: start: 20160517, end: 20160520
  8. CLONIDINE. [Suspect]
     Active Substance: CLONIDINE
     Dosage: 310.75 ?G, \DAY
     Route: 037
     Dates: start: 20160517, end: 20160520
  9. CLONIDINE. [Suspect]
     Active Substance: CLONIDINE
     Dosage: 119.9 ?G, \DAY
     Route: 037
     Dates: start: 20160527
  10. BUPIVACAINE. [Suspect]
     Active Substance: BUPIVACAINE
     Dosage: 19.994 MG, \DAY
     Route: 037
     Dates: start: 20160520
  11. BUPIVACAINE. [Suspect]
     Active Substance: BUPIVACAINE
     Dosage: 36.129 MG, \DAY
     Route: 037
     Dates: start: 20160520
  12. BUPIVACAINE. [Suspect]
     Active Substance: BUPIVACAINE
     Dosage: 32.256 MG, \DAY
     Route: 037
     Dates: start: 20160527
  13. COMPOUNDED BACLOFEN [Suspect]
     Active Substance: BACLOFEN
     Dosage: 159.87 ?G, \DAY
     Route: 037
     Dates: start: 20160527
  14. COMPOUNDED BACLOFEN [Suspect]
     Active Substance: BACLOFEN
     Dosage: 322.56 ?G, \DAY
     Route: 037
     Dates: start: 20160527
  15. DILAUDID [Suspect]
     Active Substance: HYDROMORPHONE HYDROCHLORIDE
     Dosage: 3.998 MG, \DAY
     Route: 037
     Dates: start: 20160520
  16. DILAUDID [Suspect]
     Active Substance: HYDROMORPHONE HYDROCHLORIDE
     Dosage: 3.197 MG, \DAY
     Route: 037
     Dates: start: 20160527
  17. BUPIVACAINE. [Suspect]
     Active Substance: BUPIVACAINE
     Dosage: 41.433 MG, \DAY
     Route: 037
     Dates: start: 20160517, end: 20160520
  18. BUPIVACAINE. [Suspect]
     Active Substance: BUPIVACAINE
     Dosage: 15.987 MG, \DAY
     Route: 037
     Dates: start: 20160527
  19. CLONIDINE. [Suspect]
     Active Substance: CLONIDINE
     Dosage: 149.96 ?G, \DAY
     Route: 037
     Dates: start: 20160520
  20. DILAUDID [Suspect]
     Active Substance: HYDROMORPHONE HYDROCHLORIDE
     Dosage: 8.286 MG, \DAY
     Route: 037
     Dates: start: 20160517, end: 20160520
  21. COMPOUNDED BACLOFEN [Suspect]
     Active Substance: BACLOFEN
     Dosage: 199.94 ?G, \DAY
     Route: 037
     Dates: start: 20160520
  22. DILAUDID [Suspect]
     Active Substance: HYDROMORPHONE HYDROCHLORIDE
     Dosage: 6.451 MG, \DAY
     Route: 037
     Dates: start: 20160527
  23. CLONIDINE. [Suspect]
     Active Substance: CLONIDINE
     Dosage: 187.44 ?G, \DAY
     Route: 037
     Dates: start: 20160517, end: 20160520
  24. CLONIDINE. [Suspect]
     Active Substance: CLONIDINE
     Dosage: 241.92 ?G, \DAY
     Route: 037
     Dates: start: 20160527

REACTIONS (2)
  - Overdose [Recovered/Resolved]
  - Somnolence [Recovered/Resolved]

NARRATIVE: CASE EVENT DATE: 20160520
